FAERS Safety Report 6894866-3 (Version None)
Quarter: 2010Q3

REPORT INFORMATION
  Report Type: 
  Country: None (occurrence: None)
  Receive Date: 20100730
  Receipt Date: 20100730
  Transmission Date: 20110219
  Serious: Yes (Other)
  Sender: FDA-Public Use
  Company Number: None

PATIENT
  Sex: Male
  Weight: 80.7403 kg

DRUGS (1)
  1. BUSPIRONE HCL [Suspect]
     Indication: SLEEP DISORDER
     Dosage: 5MG TABLET ONE AT BEDTIME
     Dates: start: 20100712

REACTIONS (3)
  - DRUG EFFECT DECREASED [None]
  - POLLAKIURIA [None]
  - WEIGHT DECREASED [None]
